FAERS Safety Report 17822240 (Version 1)
Quarter: 2020Q2

REPORT INFORMATION
  Report Type: Spontaneous
  Country: FR (occurrence: FR)
  Receive Date: 20200526
  Receipt Date: 20200526
  Transmission Date: 20200714
  Serious: Yes (Hospitalization)
  Sender: FDA-Public Use
  Company Number: FR-AUROBINDO-AUR-APL-2020-025447

PATIENT
  Age: 56 Year
  Sex: Female
  Weight: 112 kg

DRUGS (2)
  1. LEVETIRACETAM. [Suspect]
     Active Substance: LEVETIRACETAM
     Indication: WRONG PRODUCT ADMINISTERED
     Dosage: 1000 MILLIGRAM
     Route: 048
     Dates: start: 20200304, end: 20200304
  2. LEVOFLOXACINE [Concomitant]
     Active Substance: LEVOFLOXACIN
     Indication: INFECTION
     Dosage: NON ADMINISTR?
     Route: 048

REACTIONS (7)
  - Nausea [Recovered/Resolved]
  - Product name confusion [Recovered/Resolved]
  - Dizziness [Recovered/Resolved]
  - Wrong product administered [Recovered/Resolved]
  - Vertigo [Recovered/Resolved]
  - Product dispensing error [Recovered/Resolved]
  - Malaise [Recovered/Resolved]

NARRATIVE: CASE EVENT DATE: 20200304
